FAERS Safety Report 13362607 (Version 5)
Quarter: 2017Q3

REPORT INFORMATION
  Report Type: Spontaneous
  Country: US (occurrence: US)
  Receive Date: 20170323
  Receipt Date: 20170830
  Transmission Date: 20171127
  Serious: No
  Sender: FDA-Public Use
  Company Number: US-PFIZER INC-2017124032

PATIENT
  Age: 87 Year
  Sex: Female

DRUGS (5)
  1. IBRANCE [Suspect]
     Active Substance: PALBOCICLIB
     Dosage: 100 MG, CYCLIC (ONCE DAILY ON DAYS 1 TO 21 OF A 28 DAY CYCLE)
     Route: 048
     Dates: start: 201703
  2. GABAPENTIN. [Concomitant]
     Active Substance: GABAPENTIN
     Dosage: 300 MG, UNK
  3. OXYCODONE [Concomitant]
     Active Substance: OXYCODONE
     Dosage: 10 MG, UNK
  4. IBRANCE [Suspect]
     Active Substance: PALBOCICLIB
     Dosage: 100 MG, CYCLIC, (DAILY FOR 21 DAYS THEN OFF 7 DAYS)
     Dates: start: 20170306
  5. IBRANCE [Suspect]
     Active Substance: PALBOCICLIB
     Indication: BREAST CANCER FEMALE
     Dosage: 100 MG, UNK
     Dates: start: 20170303

REACTIONS (5)
  - Vomiting [Unknown]
  - Secretion discharge [Unknown]
  - Decreased appetite [Unknown]
  - Alopecia [Not Recovered/Not Resolved]
  - Nausea [Unknown]
